FAERS Safety Report 21552875 (Version 1)
Quarter: 2022Q4

REPORT INFORMATION
  Report Type: Report from Study
  Country: US (occurrence: US)
  Receive Date: 20221104
  Receipt Date: 20221104
  Transmission Date: 20230113
  Serious: No
  Sender: FDA-Public Use
  Company Number: US-ABBVIE-4152569

PATIENT
  Sex: Female

DRUGS (6)
  1. HUMIRA [Suspect]
     Active Substance: ADALIMUMAB
     Indication: Colitis ulcerative
     Route: 058
  2. FUROSEMIDE [Concomitant]
     Active Substance: FUROSEMIDE
     Indication: Product used for unknown indication
  3. PREDNISONE [Concomitant]
     Active Substance: PREDNISONE
     Indication: Product used for unknown indication
  4. Pfizer biotech covid-19 vaccine [Concomitant]
     Indication: COVID-19 immunisation
     Dosage: 1ST DOSE,?ONE IN ONCE
     Route: 030
     Dates: start: 20210301, end: 20210301
  5. Pfizer biotech covid-19 vaccine [Concomitant]
     Indication: COVID-19 immunisation
     Dosage: 2ND DOSE,?ONE IN ONCE
     Route: 030
     Dates: start: 20210330, end: 20210330
  6. Pfizer biotech covid-19 vaccine [Concomitant]
     Indication: COVID-19 immunisation
     Dosage: BOOSTER DOSE,?ONE IN ONCE
     Route: 030
     Dates: start: 20210801, end: 20210801

REACTIONS (2)
  - Colitis ulcerative [Not Recovered/Not Resolved]
  - Dermatitis [Unknown]
